FAERS Safety Report 10748330 (Version 3)
Quarter: 2015Q1

REPORT INFORMATION
  Report Type: Spontaneous
  Country: FR (occurrence: FR)
  Receive Date: 20150129
  Receipt Date: 20150321
  Transmission Date: 20150721
  Serious: Yes (Hospitalization)
  Sender: FDA-Public Use
  Company Number: FR-EMD SERONO-8006206

PATIENT
  Age: 60 Year
  Sex: Female

DRUGS (1)
  1. REBIF [Suspect]
     Active Substance: INTERFERON BETA-1A
     Indication: MULTIPLE SCLEROSIS
     Dates: start: 200210

REACTIONS (3)
  - Basal cell carcinoma [Recovered/Resolved]
  - Solar lentigo [Unknown]
  - Injection site nodule [Unknown]

NARRATIVE: CASE EVENT DATE: 201501
